FAERS Safety Report 7442450-5 (Version None)
Quarter: 2011Q2

REPORT INFORMATION
  Report Type: 
  Country: None (occurrence: None)
  Receive Date: 20110425
  Receipt Date: 20110425
  Transmission Date: 20111010
  Serious: Yes (Death)
  Sender: FDA-Public Use
  Company Number: None

PATIENT
  Age: 74 Year
  Sex: Female

DRUGS (6)
  1. SINEMET [Concomitant]
  2. ATIVAN [Concomitant]
  3. PREMARIN [Concomitant]
  4. FOSAMAX [Concomitant]
  5. VITAMIN B-12 [Concomitant]
  6. REVLIMID [Suspect]
     Indication: MYELODYSPLASTIC SYNDROME
     Dosage: 5MG DAILY ORALLY
     Route: 048
     Dates: start: 20110330, end: 20110416

REACTIONS (2)
  - SEPSIS [None]
  - PNEUMONIA [None]
